FAERS Safety Report 4521942-2 (Version None)
Quarter: 2004Q4

REPORT INFORMATION
  Report Type: 
  Country: None (occurrence: None)
  Receive Date: 20041207
  Receipt Date: 20001124
  Transmission Date: 20050328
  Serious: No
  Sender: FDA-Public Use
  Company Number: ZONI002068

PATIENT
  Age: 26 Year
  Sex: Female

DRUGS (5)
  1. ZONEGRAN [Suspect]
     Indication: CONVULSION
     Dosage: SEE IMAGE
     Route: 048
     Dates: start: 20041109, end: 20041101
  2. ZONEGRAN [Suspect]
     Indication: CONVULSION
     Dosage: SEE IMAGE
     Route: 048
     Dates: start: 20041101, end: 20041117
  3. ZONEGRAN [Suspect]
     Indication: CONVULSION
     Dosage: SEE IMAGE
     Route: 048
     Dates: start: 20041118, end: 20041118
  4. ZONEGRAN [Suspect]
     Indication: CONVULSION
     Dosage: SEE IMAGE
     Route: 048
     Dates: start: 20041119, end: 20041122
  5. KEPPRA [Concomitant]

REACTIONS (4)
  - BRADYCARDIA [None]
  - HYPOAESTHESIA [None]
  - PARAESTHESIA [None]
  - TOXIC EPIDERMAL NECROLYSIS [None]
